FAERS Safety Report 6743011 (Version 11)
Quarter: 2014Q1

REPORT INFORMATION
  Report Type: Spontaneous
  Country: US (occurrence: US)
  Receive Date: 20080829
  Receipt Date: 20140308
  Transmission Date: 20141002
  Serious: Yes (Hospitalization, Other)
  Sender: FDA-Public Use
  Company Number: US-ROCHE-552238

PATIENT
  Age: 16 Year
  Sex: Male
  Weight: 83.9 kg

DRUGS (6)
  1. ACCUTANE [Suspect]
     Indication: ACNE
     Dosage: THE PATIENT WAS DISPENSED ACCUTANE 40 MG CAPSULE ON 11 MARCH 1994 AND 17 OCTOBER 1994.
     Route: 065
     Dates: start: 19940311, end: 199507
  2. ACCUTANE [Suspect]
     Dosage: THE PATIENT WAS DISPENSED ACCUTANE 40 MG CAPS ON 17-OCT- 1995 ON MONDAYS, WEDNESDAYS, + FRIDAYS
     Route: 065
     Dates: start: 19951017, end: 199511
  3. ACCUTANE [Suspect]
     Dosage: THE PATIENT WAS DISPENSED ACCUTANE 40 MG CAPS ON 27-NOV-1995 AND 15-JAN-1996 AT A DOSE OF 40/80
     Route: 065
     Dates: start: 19951127, end: 199603
  4. ACCUTANE [Suspect]
     Dosage: THE PATIENT WAS DISPENSED ACCUTAME 40 MG CAPSULE ON 27 NOVEMBER 1996.
     Route: 065
     Dates: start: 19961127, end: 199709
  5. ACCUTANE [Suspect]
     Dosage: THE PATIENT WAS DISPENSED ACCUTANE 40 MG CAPSULE ON 22 MARCH 1999
     Route: 065
     Dates: start: 19990322, end: 199909
  6. COUMADIN [Concomitant]
     Indication: DEEP VEIN THROMBOSIS
     Route: 065

REACTIONS (13)
  - Colitis ulcerative [Unknown]
  - Epididymitis [Recovering/Resolving]
  - Crohn^s disease [Unknown]
  - Inflammatory bowel disease [Unknown]
  - Cholangitis sclerosing [Unknown]
  - Thrombosis [Unknown]
  - Dermal cyst [Unknown]
  - Anxiety [Unknown]
  - Keratosis pilaris [Unknown]
  - Skin papilloma [Recovered/Resolved]
  - Viral pharyngitis [Unknown]
  - Pain [Recovered/Resolved]
  - Pneumonitis [Unknown]
